FAERS Safety Report 7415140-2 (Version None)
Quarter: 2011Q2

REPORT INFORMATION
  Report Type: 
  Country: None (occurrence: None)
  Receive Date: 20110414
  Receipt Date: 20110405
  Transmission Date: 20111010
  Serious: Yes (Hospitalization, Other)
  Sender: FDA-Public Use
  Company Number: PHHY2011US21237

PATIENT
  Sex: Female

DRUGS (7)
  1. BACLOFEN [Concomitant]
     Indication: MUSCLE SPASTICITY
     Dosage: 10 MG, UNK
     Route: 048
  2. ZOLOFT [Concomitant]
     Dosage: 50 MG, UNK
     Route: 048
  3. DITROPAN [Concomitant]
     Dosage: 10 MG, UNK
     Route: 048
  4. ZINC [Concomitant]
     Dosage: 100 MG, UNK
     Route: 048
  5. CIPRO [Concomitant]
     Dosage: 250 MG, UNK
     Route: 048
  6. SENOKOT [Concomitant]
     Route: 048
  7. GILENYA [Suspect]
     Indication: MULTIPLE SCLEROSIS
     Dosage: 0.5 MG, QD
     Route: 048
     Dates: start: 20110216

REACTIONS (10)
  - TREMOR [None]
  - CHILLS [None]
  - ASTHENIA [None]
  - HEADACHE [None]
  - URINARY TRACT INFECTION [None]
  - PYREXIA [None]
  - DEHYDRATION [None]
  - CONSTIPATION [None]
  - NAUSEA [None]
  - VOMITING [None]
